FAERS Safety Report 16775489 (Version 7)
Quarter: 2021Q2

REPORT INFORMATION
  Report Type: Report from Study
  Country: IT (occurrence: IT)
  Receive Date: 20190905
  Receipt Date: 20210611
  Transmission Date: 20210716
  Serious: Yes (Death, Hospitalization, Other)
  Sender: FDA-Public Use
  Company Number: IT-TAKEDA-2019TUS050847

PATIENT
  Age: 71 Year
  Sex: Male
  Weight: 72 kg

DRUGS (3)
  1. IXAZOMIB [Suspect]
     Active Substance: IXAZOMIB
     Indication: PLASMA CELL MYELOMA
     Dosage: 4 MILLIGRAM
     Route: 048
     Dates: start: 20170616, end: 20170730
  2. LENALIDOMIDE [Suspect]
     Active Substance: LENALIDOMIDE
     Indication: PLASMA CELL MYELOMA
     Dosage: UNK
     Route: 065
  3. DEXAMETHASONE. [Suspect]
     Active Substance: DEXAMETHASONE
     Indication: PLASMA CELL MYELOMA
     Dosage: UNK
     Route: 065

REACTIONS (4)
  - Femur fracture [Fatal]
  - Neuropathy peripheral [Recovered/Resolved with Sequelae]
  - Respiratory failure [Fatal]
  - Neurotoxicity [Unknown]

NARRATIVE: CASE EVENT DATE: 20170810
